FAERS Safety Report 8624276-X (Version None)
Quarter: 2012Q3

REPORT INFORMATION
  Report Type: 
  Country: None (occurrence: None)
  Receive Date: 20120827
  Receipt Date: 20120821
  Transmission Date: 20120928
  Serious: Yes (Other)
  Sender: FDA-Public Use
  Company Number: GB-009507513-1208GBR009892

PATIENT

DRUGS (5)
  1. LOSARTAN POTASSIUM [Concomitant]
     Dosage: 50 MG, QD
     Route: 048
     Dates: start: 20070501
  2. EZETIMIBE/SIMVASTATIN [Suspect]
     Indication: ACUTE CORONARY SYNDROME
     Dosage: 10-40 MG, QD
     Route: 048
     Dates: start: 20070507
  3. NITROGLYCERIN [Concomitant]
     Dosage: 400 MICROGRAM, QD
     Route: 060
     Dates: start: 20070501
  4. ATENOLOL [Concomitant]
     Dosage: 50 MG, QD
     Route: 048
     Dates: start: 20070501
  5. ASPIRIN [Concomitant]
     Dosage: 75 MG, QD
     Route: 048
     Dates: start: 20070501

REACTIONS (1)
  - PROSTATE CANCER [None]
